FAERS Safety Report 17505602 (Version 18)
Quarter: 2023Q1

REPORT INFORMATION
  Report Type: Report from Study
  Country: US (occurrence: US)
  Receive Date: 20200305
  Receipt Date: 20230113
  Transmission Date: 20230418
  Serious: Yes (Hospitalization, Other)
  Sender: FDA-Public Use
  Company Number: US-SHIRE-US202008478

PATIENT
  Age: 67 Year
  Sex: Female

DRUGS (10)
  1. PARATHYROID HORMONE [Suspect]
     Active Substance: PARATHYROID HORMONE
     Indication: Hypoparathyroidism
     Dosage: 7 MICROGRAM
     Route: 058
     Dates: start: 20180103
  2. PARATHYROID HORMONE [Suspect]
     Active Substance: PARATHYROID HORMONE
     Indication: Hypoparathyroidism
     Dosage: 7 MICROGRAM
     Route: 058
     Dates: start: 20180103
  3. PARATHYROID HORMONE [Suspect]
     Active Substance: PARATHYROID HORMONE
     Indication: Hypoparathyroidism
     Dosage: 7 MICROGRAM
     Route: 058
     Dates: start: 20180103
  4. PARATHYROID HORMONE [Suspect]
     Active Substance: PARATHYROID HORMONE
     Dosage: 75 MICROGRAM, QD
     Route: 058
     Dates: start: 20190201, end: 20210125
  5. PARATHYROID HORMONE [Suspect]
     Active Substance: PARATHYROID HORMONE
     Dosage: 75 MICROGRAM, QD
     Route: 058
     Dates: start: 20190201, end: 20210125
  6. PARATHYROID HORMONE [Suspect]
     Active Substance: PARATHYROID HORMONE
     Dosage: 75 MICROGRAM, QD
     Route: 058
     Dates: start: 20190201, end: 20210125
  7. PARATHYROID HORMONE [Suspect]
     Active Substance: PARATHYROID HORMONE
     Dosage: 50 MICROGRAM, QD
     Route: 058
     Dates: start: 201911
  8. PARATHYROID HORMONE [Suspect]
     Active Substance: PARATHYROID HORMONE
     Dosage: 50 MICROGRAM, QD
     Route: 058
     Dates: start: 201911
  9. PARATHYROID HORMONE [Suspect]
     Active Substance: PARATHYROID HORMONE
     Dosage: 50 MICROGRAM, QD
     Route: 058
     Dates: start: 201911
  10. BACTRIM [Concomitant]
     Active Substance: SULFAMETHOXAZOLE\TRIMETHOPRIM
     Indication: Product used for unknown indication
     Route: 065

REACTIONS (21)
  - Myocardial infarction [Recovering/Resolving]
  - Blood calcium decreased [Recovered/Resolved]
  - Hypocalcaemia [Unknown]
  - Multiple fractures [Recovering/Resolving]
  - Blood potassium decreased [Unknown]
  - Glomerular filtration rate decreased [Unknown]
  - Back pain [Unknown]
  - Malaise [Unknown]
  - Pyrexia [Unknown]
  - Oropharyngeal pain [Unknown]
  - Eyelid irritation [Unknown]
  - Blood magnesium decreased [Recovering/Resolving]
  - Multiple allergies [Unknown]
  - Blood pressure increased [Unknown]
  - Illness [Recovering/Resolving]
  - Pain in extremity [Recovering/Resolving]
  - Visual impairment [Recovering/Resolving]
  - Treatment noncompliance [Unknown]
  - Product distribution issue [Unknown]
  - Product dose omission issue [Recovered/Resolved]
  - Intentional product misuse [Unknown]

NARRATIVE: CASE EVENT DATE: 20200225
